FAERS Safety Report 21946873 (Version 1)
Quarter: 2023Q1

REPORT INFORMATION
  Report Type: Spontaneous
  Country: CO (occurrence: CO)
  Receive Date: 20230202
  Receipt Date: 20230202
  Transmission Date: 20230418
  Serious: Yes (Other)
  Sender: FDA-Public Use
  Company Number: CO-PFIZER INC-PV202300018785

PATIENT
  Age: 55 Year
  Sex: Female

DRUGS (2)
  1. PALBOCICLIB [Suspect]
     Active Substance: PALBOCICLIB
     Indication: Breast cancer metastatic
     Dosage: 100 MG
     Route: 048
     Dates: start: 2019, end: 202301
  2. AZITHROMYCIN [Concomitant]
     Active Substance: AZITHROMYCIN
     Dosage: UNK

REACTIONS (7)
  - Cough [Unknown]
  - Dyspnoea [Unknown]
  - Choking [Unknown]
  - Foot operation [Unknown]
  - Decreased immune responsiveness [Unknown]
  - Vitamin B12 deficiency [Unknown]
  - Malaise [Unknown]

NARRATIVE: CASE EVENT DATE: 20221122
